FAERS Safety Report 7062935-3 (Version None)
Quarter: 2010Q4

REPORT INFORMATION
  Report Type: 
  Country: None (occurrence: None)
  Receive Date: 20101026
  Receipt Date: 20100305
  Transmission Date: 20110411
  Serious: No
  Sender: FDA-Public Use
  Company Number: US-PFIZER INC-2010032096

PATIENT

DRUGS (1)
  1. LIPITOR [Suspect]
     Dosage: 20 MG, DAILY

REACTIONS (2)
  - FOOD INTERACTION [None]
  - PAIN IN EXTREMITY [None]
